FAERS Safety Report 20779819 (Version 3)
Quarter: 2022Q3

REPORT INFORMATION
  Report Type: Spontaneous
  Country: US (occurrence: US)
  Receive Date: 20220503
  Receipt Date: 20220920
  Transmission Date: 20221027
  Serious: No
  Sender: FDA-Public Use
  Company Number: US-PFIZER INC-202200456121

PATIENT
  Age: 61 Year
  Sex: Female

DRUGS (20)
  1. XELJANZ [Suspect]
     Active Substance: TOFACITINIB CITRATE
     Dosage: 5 MG, 2X/DAY
     Route: 048
     Dates: start: 20211101
  2. ZINC [Concomitant]
     Active Substance: ZINC
     Dosage: 50 MG
  3. LORATADINE D [Concomitant]
     Active Substance: LORATADINE\PSEUDOEPHEDRINE SULFATE
     Dosage: 10 MG
  4. CALCIUM [Concomitant]
     Active Substance: CALCIUM
     Dosage: 600 MG
  5. ASPERCREME PAIN RELIEVING [Concomitant]
     Active Substance: TROLAMINE SALICYLATE
     Dosage: UNK (10 % CREAM (G))
  6. VITAMINS [Concomitant]
     Active Substance: VITAMINS
     Dosage: UNK
  7. MAGNESIUM [Concomitant]
     Active Substance: MAGNESIUM
     Dosage: 100 MG
  8. MEDROL [Concomitant]
     Active Substance: METHYLPREDNISOLONE
     Dosage: UNK
  9. PREDNESOL [Concomitant]
     Dosage: UNK
  10. METHOCARBAMOL [Concomitant]
     Active Substance: METHOCARBAMOL
     Dosage: 500 MG
  11. HYDROXYCHLOROQUINE [Concomitant]
     Active Substance: HYDROXYCHLOROQUINE
     Dosage: UNK
  12. VITAMIN D3 [Concomitant]
     Active Substance: CHOLECALCIFEROL
     Dosage: 25 UG
  13. IBUPROFEN [Concomitant]
     Active Substance: IBUPROFEN
     Dosage: 200 MG
  14. DICLOFENAC DIETHYLAMINE [Concomitant]
     Active Substance: DICLOFENAC DIETHYLAMINE
     Dosage: UNK
  15. PREDNISONE [Concomitant]
     Active Substance: PREDNISONE
     Dosage: 5 MG
  16. HYDROXYCHLOROQUINE SULFATE [Concomitant]
     Active Substance: HYDROXYCHLOROQUINE SULFATE
     Dosage: UNK
  17. FLAXSEED [Concomitant]
     Active Substance: FLAX SEED
     Dosage: 1000 MG
  18. MOMETASONE FUROATE [Concomitant]
     Active Substance: MOMETASONE FUROATE
     Dosage: UNK
  19. FISH OIL [Concomitant]
     Active Substance: FISH OIL
     Dosage: UNK (100-160 MG)
  20. NASONEX [Concomitant]
     Active Substance: MOMETASONE FUROATE
     Dosage: UNK

REACTIONS (8)
  - Product dose omission in error [Unknown]
  - Arthralgia [Unknown]
  - Pain in extremity [Unknown]
  - Loss of personal independence in daily activities [Unknown]
  - Condition aggravated [Unknown]
  - Myositis [Unknown]
  - Arthritis [Unknown]
  - Rhinorrhoea [Not Recovered/Not Resolved]

NARRATIVE: CASE EVENT DATE: 20220301
